FAERS Safety Report 7767561-6 (Version None)
Quarter: 2011Q3

REPORT INFORMATION
  Report Type: 
  Country: None (occurrence: None)
  Receive Date: 20110922
  Receipt Date: 20110913
  Transmission Date: 20111222
  Serious: Yes (Other)
  Sender: FDA-Public Use
  Company Number: GB-JNJFOC-20110905700

PATIENT
  Sex: Male

DRUGS (2)
  1. ROGAINE [Suspect]
     Route: 061
  2. ROGAINE [Suspect]
     Indication: PRODUCT USED FOR UNKNOWN INDICATION
     Route: 061
     Dates: start: 20110729, end: 20110730

REACTIONS (3)
  - CHEST PAIN [None]
  - DISORIENTATION [None]
  - MALAISE [None]
